FAERS Safety Report 5161666-4 (Version None)
Quarter: 2006Q4

REPORT INFORMATION
  Report Type: 
  Country: None (occurrence: None)
  Receive Date: 20061130
  Receipt Date: 20060418
  Transmission Date: 20070319
  Serious: No
  Sender: FDA-Public Use
  Company Number: US-BRISTOL-MYERS SQUIBB COMPANY-13350103

PATIENT
  Age: 72 Year
  Sex: Female
  Weight: 95 kg

DRUGS (3)
  1. GLUCOPHAGE XR [Suspect]
     Indication: DIABETES MELLITUS
     Route: 048
  2. ALTACE [Concomitant]
  3. ZYRTEC [Concomitant]

REACTIONS (1)
  - ANAL DISCOMFORT [None]
